FAERS Safety Report 5382835-4 (Version None)
Quarter: 2007Q3

REPORT INFORMATION
  Report Type: 
  Country: None (occurrence: None)
  Receive Date: 20070702
  Receipt Date: 20070418
  Transmission Date: 20080115
  Serious: No
  Sender: FDA-Public Use
  Company Number: 2007PV032825

PATIENT
  Age: 60 Year
  Sex: Male

DRUGS (4)
  1. SYMLIN [Suspect]
     Indication: DIABETES MELLITUS
     Dosage: 96 MCG;QPM;SC; 72 MCG;QAM;SC
     Route: 058
     Dates: start: 20060101
  2. SYMLIN [Suspect]
     Indication: DIABETES MELLITUS
     Dosage: 96 MCG;QPM;SC; 72 MCG;QAM;SC
     Route: 058
     Dates: start: 20060101
  3. HUMULIN R [Concomitant]
  4. NOVOLOG [Concomitant]

REACTIONS (1)
  - INJECTION SITE PAIN [None]
